FAERS Safety Report 21853289 (Version 1)
Quarter: 2023Q1

REPORT INFORMATION
  Report Type: Spontaneous
  Country: US (occurrence: US)
  Receive Date: 20230112
  Receipt Date: 20230112
  Transmission Date: 20230418
  Serious: Yes (Death, Other)
  Sender: FDA-Public Use
  Company Number: US-BRISTOL-MYERS SQUIBB COMPANY-2023-005270

PATIENT
  Age: 81 Year
  Sex: Male

DRUGS (23)
  1. REVLIMID [Suspect]
     Active Substance: LENALIDOMIDE
     Indication: Plasma cell myeloma
     Dosage: DOSE : 10 MG;     FREQ : 21 DAYS AND 7 DAYS OFF
     Dates: start: 20220914, end: 20221228
  2. FISH OIL [Concomitant]
     Active Substance: FISH OIL
  3. PLAVIX [Concomitant]
     Active Substance: CLOPIDOGREL BISULFATE
     Indication: Product used for unknown indication
  4. ASCORBIC ACID [Concomitant]
     Active Substance: ASCORBIC ACID
     Indication: Product used for unknown indication
  5. LIPITOR [Concomitant]
     Active Substance: ATORVASTATIN CALCIUM
     Indication: Product used for unknown indication
  6. LOTRISONE [Concomitant]
     Active Substance: BETAMETHASONE DIPROPIONATE\CLOTRIMAZOLE
     Indication: Product used for unknown indication
  7. CEFIXIME [Concomitant]
     Active Substance: CEFIXIME
     Indication: Product used for unknown indication
  8. VITAMIN D2 [Concomitant]
     Active Substance: ERGOCALCIFEROL
  9. PROSCAR [Concomitant]
     Active Substance: FINASTERIDE
  10. SILDENAFIL [Concomitant]
     Active Substance: SILDENAFIL
  11. LASIX [Concomitant]
     Active Substance: FUROSEMIDE
  12. NOVOLOG [Concomitant]
     Active Substance: INSULIN ASPART
  13. GLUCOPHAGE [Concomitant]
     Active Substance: METFORMIN HYDROCHLORIDE
  14. MINERALS\VITAMINS [Concomitant]
     Active Substance: MINERALS\VITAMINS
  15. MYRBETRIQ [Concomitant]
     Active Substance: MIRABEGRON
  16. OXYCODONE HYDROCHLORIDE [Concomitant]
     Active Substance: OXYCODONE HYDROCHLORIDE
  17. OZEMPIC [Concomitant]
     Active Substance: SEMAGLUTIDE
  18. ALTACE [Concomitant]
     Active Substance: RAMIPRIL
  19. SENOKOT [Concomitant]
     Active Substance: SENNOSIDES
  20. ALDACTONE [Concomitant]
     Active Substance: SPIRONOLACTONE
  21. CIALIS [Concomitant]
     Active Substance: TADALAFIL
  22. KENALOG [Concomitant]
     Active Substance: TRIAMCINOLONE ACETONIDE
  23. TURMERIC [CURCUMA LONGA ROOT] [Concomitant]

REACTIONS (1)
  - Death [Fatal]
